FAERS Safety Report 6143111-5 (Version None)
Quarter: 2009Q2

REPORT INFORMATION
  Report Type: 
  Country: None (occurrence: None)
  Receive Date: 20090403
  Receipt Date: 20090325
  Transmission Date: 20091009
  Serious: No
  Sender: FDA-Public Use
  Company Number: US-JNJFOC-20090306812

PATIENT
  Sex: Female
  Weight: 134.27 kg

DRUGS (5)
  1. FENTANYL TRANSDERMAL SYSTEM [Suspect]
     Indication: COMPLEX REGIONAL PAIN SYNDROME
     Route: 062
  2. FENTANYL TRANSDERMAL SYSTEM [Suspect]
     Indication: FIBROMYALGIA
     Route: 062
  3. PERCOCET [Concomitant]
     Indication: PAIN
     Dosage: 10/325 MG 2-3 TABLETS EVERY 4-6 HOURS
     Route: 048
  4. LYRICA [Concomitant]
     Indication: PAIN
     Route: 048
  5. AVINZA [Concomitant]
     Indication: PAIN
     Route: 048

REACTIONS (4)
  - DRUG ADMINISTERED AT INAPPROPRIATE SITE [None]
  - FALL [None]
  - HALLUCINATIONS, MIXED [None]
  - PRODUCT QUALITY ISSUE [None]
